FAERS Safety Report 15370595 (Version 1)
Quarter: 2018Q3

REPORT INFORMATION
  Report Type: Spontaneous
  Country: US (occurrence: US)
  Receive Date: 20180905
  Receipt Date: 20180905
  Transmission Date: 20181010
  Serious: Yes (Life-Threatening, Hospitalization, Disabling)
  Sender: FDA-Public Use
  Company Number: None

PATIENT
  Age: 50 Year
  Sex: Female
  Weight: 67.5 kg

DRUGS (9)
  1. LATUDA [Concomitant]
     Active Substance: LURASIDONE HYDROCHLORIDE
  2. ALPRAZOLAM. [Concomitant]
     Active Substance: ALPRAZOLAM
  3. D?AMPHETAMINE [Concomitant]
     Active Substance: DEXTROAMPHETAMINE
  4. TYLENOL [Concomitant]
     Active Substance: ACETAMINOPHEN
  5. ASPIRIN. [Concomitant]
     Active Substance: ASPIRIN
  6. SERTRALINE [Concomitant]
     Active Substance: SERTRALINE HYDROCHLORIDE
  7. PRAVASTATIN. [Concomitant]
     Active Substance: PRAVASTATIN
  8. ACZONE [Suspect]
     Active Substance: DAPSONE
     Indication: ACNE
     Route: 061
     Dates: start: 20171201, end: 20180819
  9. ESTRADIOL. [Concomitant]
     Active Substance: ESTRADIOL

REACTIONS (16)
  - Chromaturia [None]
  - Tremor [None]
  - Confusional state [None]
  - Gait disturbance [None]
  - Tongue blistering [None]
  - Dysgeusia [None]
  - Delirium [None]
  - Speech disorder [None]
  - Chest pain [None]
  - Asthenia [None]
  - Oral mucosal blistering [None]
  - Influenza like illness [None]
  - Rash [None]
  - Impaired driving ability [None]
  - Swollen tongue [None]
  - Jaundice [None]

NARRATIVE: CASE EVENT DATE: 20171201
